FAERS Safety Report 4481269-4 (Version None)
Quarter: 2004Q3

REPORT INFORMATION
  Report Type: 
  Country: None (occurrence: None)
  Receive Date: 20040923
  Receipt Date: 20040604
  Transmission Date: 20050211
  Serious: No
  Sender: FDA-Public Use
  Company Number: USA040568795

PATIENT
  Age: 80 Year
  Sex: Female
  Weight: 45 kg

DRUGS (4)
  1. FORTEO [Suspect]
     Indication: BONE DISORDER
     Dates: start: 20040301
  2. IRON [Concomitant]
  3. NEXIUM [Concomitant]
  4. CALCIUM [Concomitant]

REACTIONS (5)
  - ASTHENIA [None]
  - DYSPNOEA [None]
  - FEELING JITTERY [None]
  - NERVOUSNESS [None]
  - POLLAKIURIA [None]
